FAERS Safety Report 13762959 (Version 1)
Quarter: 2017Q3

REPORT INFORMATION
  Report Type: Spontaneous
  Country: US (occurrence: US)
  Receive Date: 20170718
  Receipt Date: 20170718
  Transmission Date: 20171127
  Serious: No
  Sender: FDA-Public Use
  Company Number: US-ELI_LILLY_AND_COMPANY-US201707005014

PATIENT
  Age: 46 Year
  Sex: Male

DRUGS (2)
  1. CARBOPLATIN. [Concomitant]
     Active Substance: CARBOPLATIN
     Indication: PRODUCT USED FOR UNKNOWN INDICATION
     Dosage: UNK, UNKNOWN
     Route: 065
     Dates: start: 20161003
  2. ALIMTA [Suspect]
     Active Substance: PEMETREXED DISODIUM
     Indication: NON-SMALL CELL LUNG CANCER
     Dosage: 1.05 MG, UNKNOWN
     Route: 065
     Dates: start: 20161003

REACTIONS (5)
  - Off label use [Unknown]
  - Oedema [Unknown]
  - Pyrexia [Unknown]
  - Productive cough [Unknown]
  - Back pain [Unknown]

NARRATIVE: CASE EVENT DATE: 20161003
